FAERS Safety Report 6050129-X (Version None)
Quarter: 2009Q1

REPORT INFORMATION
  Report Type: 
  Country: None (occurrence: None)
  Receive Date: 20090121
  Receipt Date: 20090108
  Transmission Date: 20090719
  Serious: Yes (Death)
  Sender: FDA-Public Use
  Company Number: 2009-00057

PATIENT
  Sex: Male

DRUGS (1)
  1. VELCADE [Suspect]
     Indication: AMYLOIDOSIS

REACTIONS (1)
  - DEATH [None]
